FAERS Safety Report 8846936 (Version 1)
Quarter: 2012Q4

REPORT INFORMATION
  Report Type: Spontaneous
  Country: US (occurrence: None)
  Receive Date: 20121017
  Receipt Date: 20121017
  Transmission Date: 20130627
  Serious: Yes (Life-Threatening, Hospitalization)
  Sender: FDA-Public Use
  Company Number: None

PATIENT
  Age: 54 Year
  Sex: Female
  Weight: 74.8 kg

DRUGS (1)
  1. SUCCINYLCHOLINE [Suspect]
     Route: 042
     Dates: start: 20120405, end: 20120405

REACTIONS (2)
  - Pulseless electrical activity [None]
  - Cardio-respiratory arrest [None]
